FAERS Safety Report 8986847 (Version 2)
Quarter: 2015Q4

REPORT INFORMATION
  Report Type: Report from Study
  Country: US (occurrence: US)
  Receive Date: 20121227
  Receipt Date: 20151123
  Transmission Date: 20160305
  Serious: Yes (Hospitalization, Other)
  Sender: FDA-Public Use
  Company Number: US-BIOGENIDEC-2012BI062554

PATIENT
  Age: 61 Year
  Sex: Female

DRUGS (2)
  1. AVONEX [Suspect]
     Active Substance: INTERFERON BETA-1A
     Indication: MULTIPLE SCLEROSIS
     Route: 030
     Dates: start: 20040401
  2. AVONEX [Suspect]
     Active Substance: INTERFERON BETA-1A
     Indication: MULTIPLE SCLEROSIS
     Route: 030
     Dates: start: 20130103

REACTIONS (5)
  - Fall [Recovered/Resolved]
  - Loss of control of legs [Recovered/Resolved]
  - Intervertebral disc protrusion [Recovered/Resolved]
  - Intervertebral disc degeneration [Recovered/Resolved]
  - Spinal fusion surgery [Recovered/Resolved]

NARRATIVE: CASE EVENT DATE: 201112
